FAERS Safety Report 10793034 (Version 1)
Quarter: 2015Q1

REPORT INFORMATION
  Report Type: Other
  Country: US (occurrence: US)
  Receive Date: 20150213
  Receipt Date: 20150213
  Transmission Date: 20150721
  Serious: Yes (Hospitalization)
  Sender: FDA-Public Use
  Company Number: US-ACTELION-A-CH2015-112527

PATIENT
  Age: 56 Year
  Sex: Female

DRUGS (7)
  1. TRACLEER [Suspect]
     Active Substance: BOSENTAN\BOSENTAN MONOHYDRATE
     Indication: PULMONARY ARTERIAL HYPERTENSION
     Route: 048
  2. ASA [Concomitant]
     Active Substance: ASPIRIN
  3. SYNTHROID [Concomitant]
     Active Substance: LEVOTHYROXINE SODIUM
  4. FOLIC ACID. [Concomitant]
     Active Substance: FOLIC ACID
  5. LASIX [Concomitant]
     Active Substance: FUROSEMIDE
  6. TRAMADOL [Concomitant]
     Active Substance: TRAMADOL
  7. HYDROXYUREA. [Concomitant]
     Active Substance: HYDROXYUREA

REACTIONS (14)
  - Aspartate aminotransferase increased [Unknown]
  - Alanine aminotransferase increased [Unknown]
  - Chromaturia [Unknown]
  - Cholelithiasis [Unknown]
  - Pruritus [Unknown]
  - Cholestasis [Unknown]
  - Deep vein thrombosis [Unknown]
  - Blood bilirubin increased [Unknown]
  - Hepatic necrosis [Unknown]
  - Biopsy liver [Unknown]
  - Autoimmune hepatitis [Unknown]
  - Blood alkaline phosphatase increased [Unknown]
  - Yellow skin [Unknown]
  - Ocular icterus [Unknown]
